FAERS Safety Report 7073943-0 (Version None)
Quarter: 2010Q4

REPORT INFORMATION
  Report Type: 
  Country: None (occurrence: None)
  Receive Date: 20101029
  Receipt Date: 20101019
  Transmission Date: 20110411
  Serious: Yes (Hospitalization, Other)
  Sender: FDA-Public Use
  Company Number: PHHY2010DE70783

PATIENT
  Sex: Female

DRUGS (6)
  1. SANDIMMUNE [Suspect]
     Indication: HEART TRANSPLANT
     Dosage: T.I.D.DOSING
     Route: 048
     Dates: start: 20100101
  2. SANDIMMUNE [Suspect]
     Dosage: 27 MG IN THE MORNING AND IN EVENING
     Route: 048
     Dates: end: 20101001
  3. SANDIMMUNE [Suspect]
     Dosage: 37 MG IN MORNING AND IN EVENING
     Route: 048
     Dates: start: 20101001
  4. CERTICAN [Suspect]
     Indication: HEART TRANSPLANT
     Dosage: HIGH DOSE
     Route: 048
     Dates: start: 20100101
  5. CERTICAN [Suspect]
     Dosage: 0.2 MG IN MORNING AND 0.1MG IN EVENING
     Route: 048
     Dates: end: 20101001
  6. CERTICAN [Suspect]
     Dosage: 0.3 MG IN MORNING AND IN EVENING
     Route: 048
     Dates: start: 20101001

REACTIONS (10)
  - CATHETERISATION CARDIAC [None]
  - COMPRESSION STOCKINGS APPLICATION [None]
  - DRUG ADMINISTRATION ERROR [None]
  - HEART TRANSPLANT REJECTION [None]
  - INFECTION SUSCEPTIBILITY INCREASED [None]
  - LYMPHOEDEMA [None]
  - MANUAL LYMPHATIC DRAINAGE [None]
  - OEDEMA PERIPHERAL [None]
  - PYREXIA [None]
  - T-LYMPHOCYTE COUNT INCREASED [None]
